FAERS Safety Report 11093770 (Version 1)
Quarter: 2015Q2

REPORT INFORMATION
  Report Type: Spontaneous
  Country: US (occurrence: None)
  Receive Date: 20150428
  Receipt Date: 20150428
  Transmission Date: 20150821
  Serious: Yes (Hospitalization)
  Sender: FDA-Public Use
  Company Number: PHEH2014US007767

PATIENT
  Age: 50 Year
  Sex: Male
  Weight: 80.7 kg

DRUGS (1)
  1. GILENYA [Suspect]
     Active Substance: FINGOLIMOD HYDROCHLORIDE
     Indication: RELAPSING-REMITTING MULTIPLE SCLEROSIS
     Route: 048
     Dates: start: 20111015, end: 20140118

REACTIONS (2)
  - Lung infection [None]
  - Pleural effusion [None]

NARRATIVE: CASE EVENT DATE: 20140118
